FAERS Safety Report 6501792-8 (Version None)
Quarter: 2009Q4

REPORT INFORMATION
  Report Type: 
  Country: None (occurrence: None)
  Receive Date: 20091216
  Receipt Date: 20091208
  Transmission Date: 20100525
  Serious: Yes (Hospitalization)
  Sender: FDA-Public Use
  Company Number: US-ASTRAZENECA-2009SE30696

PATIENT
  Sex: Female

DRUGS (4)
  1. SEROQUEL [Suspect]
     Indication: BIPOLAR I DISORDER
     Route: 048
  2. FLOWMAX [Concomitant]
     Indication: STRESS URINARY INCONTINENCE
  3. AMBIEN [Concomitant]
     Indication: SLEEP DISORDER
  4. OXYCAL [Concomitant]
     Indication: OXYGEN SUPPLEMENTATION

REACTIONS (8)
  - BLOOD PRESSURE DECREASED [None]
  - BLOOD URINE PRESENT [None]
  - DYSPHAGIA [None]
  - EYE HAEMORRHAGE [None]
  - EYE PAIN [None]
  - SYNCOPE [None]
  - WEIGHT INCREASED [None]
  - WHITE BLOOD CELL COUNT INCREASED [None]
